FAERS Safety Report 21683798 (Version 1)
Quarter: 2022Q4

REPORT INFORMATION
  Report Type: Spontaneous
  Country: PL (occurrence: PL)
  Receive Date: 20221205
  Receipt Date: 20221205
  Transmission Date: 20230113
  Serious: Yes (Hospitalization, Other)
  Sender: FDA-Public Use
  Company Number: PL-SUN PHARMACEUTICAL INDUSTRIES LTD-2022RR-365441

PATIENT
  Age: 28 Year
  Sex: Female

DRUGS (5)
  1. ARIPIPRAZOLE [Suspect]
     Active Substance: ARIPIPRAZOLE
     Indication: Acute psychosis
     Dosage: 15 MG
     Route: 065
  2. ALPRAZOLAM [Suspect]
     Active Substance: ALPRAZOLAM
     Indication: Acute psychosis
     Dosage: 0.25 MILLIGRAM, UNK
     Route: 065
  3. CITALOPRAM [Suspect]
     Active Substance: CITALOPRAM HYDROBROMIDE
     Indication: Acute psychosis
     Dosage: 10 MILLIGRAM, UNK
     Route: 065
  4. QUETIAPINE [Suspect]
     Active Substance: QUETIAPINE
     Indication: Acute psychosis
     Dosage: 100 MILLIGRAM, UNK
     Route: 065
  5. OLANZAPINE [Suspect]
     Active Substance: OLANZAPINE
     Indication: Acute psychosis
     Dosage: 5 MILLIGRAM, UNK
     Route: 048

REACTIONS (7)
  - Disease progression [Unknown]
  - Hypoaesthesia [Unknown]
  - Hyperprolactinaemia [Unknown]
  - Memory impairment [Unknown]
  - Disturbance in attention [Unknown]
  - Headache [Unknown]
  - Product use in unapproved indication [Unknown]
